FAERS Safety Report 7583229-3 (Version None)
Quarter: 2011Q2

REPORT INFORMATION
  Report Type: 
  Country: None (occurrence: None)
  Receive Date: 20110623
  Receipt Date: 20110614
  Transmission Date: 20111010
  Serious: Yes (Life-Threatening)
  Sender: FDA-Public Use
  Company Number: LEO-2011-00524

PATIENT
  Age: 78 Year
  Sex: Male

DRUGS (4)
  1. AMOXICILLIN-CLAVULANTE (AMOXICILLIN, CLAVULANATE POTASSIUM) [Concomitant]
  2. CIPROFLOXACIN [Concomitant]
  3. INNOHEP [Suspect]
     Indication: THROMBOSIS PROPHYLAXIS
     Dosage: 3500 IU, SUBCUTANEOUS
     Route: 058
  4. ACTIVASE [Suspect]
     Indication: PLEURAL INFECTION
     Dosage: SEE IMAGE
     Route: 034

REACTIONS (10)
  - INTERNATIONAL NORMALISED RATIO INCREASED [None]
  - HYPOVOLAEMIA [None]
  - ACTIVATED PARTIAL THROMBOPLASTIN TIME SHORTENED [None]
  - ATELECTASIS [None]
  - HAEMOGLOBIN DECREASED [None]
  - WHITE BLOOD CELL COUNT INCREASED [None]
  - C-REACTIVE PROTEIN INCREASED [None]
  - HAEMOTHORAX [None]
  - PLEURAL EFFUSION [None]
  - PYREXIA [None]
